FAERS Safety Report 5175616-8 (Version None)
Quarter: 2006Q4

REPORT INFORMATION
  Report Type: 
  Country: None (occurrence: None)
  Receive Date: 20061215
  Receipt Date: 20060626
  Transmission Date: 20070319
  Serious: No
  Sender: FDA-Public Use
  Company Number: US-AMGEN-KDL184476

PATIENT
  Sex: Female
  Weight: 70.4 kg

DRUGS (2)
  1. ENBREL [Suspect]
     Indication: RHEUMATOID ARTHRITIS
     Route: 058
     Dates: start: 20050629, end: 20060622
  2. ARAVA [Concomitant]
     Dates: start: 19990101

REACTIONS (6)
  - COLON NEOPLASM [None]
  - CONDITION AGGRAVATED [None]
  - DIVERTICULITIS [None]
  - INJECTION SITE PAIN [None]
  - MUSCLE SPASMS [None]
  - PAIN IN EXTREMITY [None]
